FAERS Safety Report 7357333-9 (Version None)
Quarter: 2011Q1

REPORT INFORMATION
  Report Type: 
  Country: None (occurrence: None)
  Receive Date: 20110317
  Receipt Date: 20110114
  Transmission Date: 20110831
  Serious: Yes (Hospitalization)
  Sender: FDA-Public Use
  Company Number: CA-BAYER-201022275NA

PATIENT
  Sex: Male

DRUGS (10)
  1. FUROSEMIDE [Concomitant]
     Route: 048
     Dates: start: 20100511
  2. ERLOTINIB [Suspect]
     Indication: HEPATIC NEOPLASM MALIGNANT
  3. DIMENHYDRINATE [Concomitant]
     Dosage: Q 6 HOURS
     Route: 048
     Dates: start: 20100511
  4. VALSARTAN [Concomitant]
     Route: 048
     Dates: start: 20100511
  5. ACETAMINOPHEN [Concomitant]
     Dosage: 2 TABS Q 4 HOURS
     Route: 048
     Dates: start: 20100511
  6. NADOLOL [Concomitant]
     Route: 048
     Dates: start: 20100511
  7. SORAFENIB (RAF KINASE INHIBITOR) [Suspect]
     Indication: HEPATIC NEOPLASM MALIGNANT
     Route: 048
  8. LORAZEPAM [Concomitant]
     Route: 048
     Dates: start: 20100511
  9. PANTOPRAZOLE [Concomitant]
     Route: 048
     Dates: start: 20100511
  10. CALCIUM +VIT D [Concomitant]
     Dosage: 500 MG - 400 U QD WITH BREAKFAST
     Route: 048
     Dates: start: 20100511

REACTIONS (3)
  - HEPATIC ENCEPHALOPATHY [None]
  - DIARRHOEA [None]
  - BLOOD BILIRUBIN INCREASED [None]
